FAERS Safety Report 4402022-3 (Version None)
Quarter: 2004Q3

REPORT INFORMATION
  Report Type: 
  Country: None (occurrence: None)
  Receive Date: 20040719
  Receipt Date: 20040719
  Transmission Date: 20050211
  Serious: Yes (Other)
  Sender: FDA-Public Use
  Company Number: None

PATIENT
  Age: 20 Year
  Sex: Female
  Weight: 56.6996 kg

DRUGS (1)
  1. ULTRAM [Suspect]
     Indication: OSTEITIS
     Dosage: 50-100 MG  EVERY 4-6  ORAL
     Route: 048
     Dates: start: 20040706, end: 20040710

REACTIONS (7)
  - ANGER [None]
  - DIZZINESS [None]
  - DRUG TOXICITY [None]
  - EUPHORIC MOOD [None]
  - FEELING ABNORMAL [None]
  - MEDICATION ERROR [None]
  - PARAESTHESIA [None]
